FAERS Safety Report 7980613-0 (Version None)
Quarter: 2011Q4

REPORT INFORMATION
  Report Type: 
  Country: None (occurrence: None)
  Receive Date: 20111214
  Receipt Date: 20111207
  Transmission Date: 20120403
  Serious: Yes (Life-Threatening, Other)
  Sender: FDA-Public Use
  Company Number: JP-CEPHALON-2011001854

PATIENT
  Sex: Female
  Weight: 44 kg

DRUGS (7)
  1. BENDAMUSTINE HCL [Suspect]
     Indication: B-CELL LYMPHOMA
     Route: 042
     Dates: start: 20110111, end: 20110302
  2. BROTIZOLAM [Concomitant]
     Dates: start: 20110111
  3. BENDAMUSTINE HCL [Suspect]
     Route: 042
     Dates: start: 20110405
  4. TEPRENONE [Concomitant]
     Dates: start: 20110111
  5. VIDARABINE [Concomitant]
     Dates: start: 20110628, end: 20110629
  6. ALLOPURINOL [Concomitant]
     Dates: start: 20110111
  7. SULFAMETHOXAZOLE AND TRIMETHOPRIM [Concomitant]
     Dates: start: 20110111

REACTIONS (6)
  - HAEMOLYTIC ANAEMIA [None]
  - LYMPHOPENIA [None]
  - PLATELET COUNT DECREASED [None]
  - GRANULOCYTE COUNT DECREASED [None]
  - PHLEBITIS [None]
  - LYMPHOCYTE COUNT DECREASED [None]
